FAERS Safety Report 17912618 (Version 1)
Quarter: 2020Q2

REPORT INFORMATION
  Report Type: Spontaneous
  Country: US (occurrence: US)
  Receive Date: 20200618
  Receipt Date: 20200618
  Transmission Date: 20200714
  Serious: No
  Sender: FDA-Public Use
  Company Number: None

PATIENT
  Age: 57 Year
  Sex: Female
  Weight: 54 kg

DRUGS (17)
  1. PLAQUENIL [Concomitant]
     Active Substance: HYDROXYCHLOROQUINE SULFATE
  2. PHENEGRAN [Concomitant]
  3. MEDIPORT [Concomitant]
  4. BLOOD PRESSURE MACHINE [Concomitant]
  5. AMBIEN [Concomitant]
     Active Substance: ZOLPIDEM TARTRATE
  6. IV SALINE [Concomitant]
     Active Substance: SODIUM CHLORIDE
  7. PEPCID [Concomitant]
     Active Substance: FAMOTIDINE
  8. PROPRANOLOL [Concomitant]
     Active Substance: PROPRANOLOL HYDROCHLORIDE
  9. MULTI VITAMIN [Concomitant]
     Active Substance: VITAMINS
  10. MULTIVITAMIN [Concomitant]
     Active Substance: VITAMINS
  11. GADOLINIUM CONTRAST [Suspect]
     Active Substance: GADOLINIUM
     Indication: SCAN WITH CONTRAST
     Route: 042
  12. CLONIDINE PATCH [Concomitant]
     Active Substance: CLONIDINE
  13. VITAMIN D [Concomitant]
     Active Substance: VITAMIN D NOS
  14. ZYRTEC [Concomitant]
     Active Substance: CETIRIZINE HYDROCHLORIDE
  15. BENADRYL [Concomitant]
     Active Substance: DIPHENHYDRAMINE HYDROCHLORIDE
  16. EPIPEN [Concomitant]
     Active Substance: EPINEPHRINE
  17. VITAMIN D [Concomitant]
     Active Substance: VITAMIN D NOS

REACTIONS (4)
  - Toxicity to various agents [None]
  - Renal disorder [None]
  - Bone pain [None]
  - Alopecia [None]
